FAERS Safety Report 11507088 (Version 1)
Quarter: 2015Q3

REPORT INFORMATION
  Report Type: Spontaneous
  Country: BR (occurrence: BR)
  Receive Date: 20150915
  Receipt Date: 20150915
  Transmission Date: 20151125
  Serious: Yes (Life-Threatening, Hospitalization)
  Sender: FDA-Public Use
  Company Number: PHHY2015BR110721

PATIENT
  Sex: Male
  Weight: 70 kg

DRUGS (3)
  1. ALOIS [Suspect]
     Active Substance: MEMANTINE
     Dosage: 1 DF, QD
     Route: 048
  2. ALOIS [Suspect]
     Active Substance: MEMANTINE
     Indication: DEMENTIA ALZHEIMER^S TYPE
     Dosage: 2 DF, QD
     Route: 048
  3. EXELON PATCH [Suspect]
     Active Substance: RIVASTIGMINE
     Indication: DEMENTIA ALZHEIMER^S TYPE
     Dosage: 13.3 MG, QD (ONE PATCH OF 27 MG / 15 CM2, DAILY AFTER BATH)
     Route: 062

REACTIONS (7)
  - Diabetic hyperglycaemic coma [Not Recovered/Not Resolved]
  - Malaise [Not Recovered/Not Resolved]
  - Weight decreased [Not Recovered/Not Resolved]
  - Diabetes mellitus [Not Recovered/Not Resolved]
  - Pneumonia [Not Recovered/Not Resolved]
  - Panic reaction [Not Recovered/Not Resolved]
  - Hypokinesia [Not Recovered/Not Resolved]
